FAERS Safety Report 6452450-X (Version None)
Quarter: 2009Q4

REPORT INFORMATION
  Report Type: 
  Country: None (occurrence: None)
  Receive Date: 20091123
  Receipt Date: 20090209
  Transmission Date: 20100525
  Serious: No
  Sender: FDA-Public Use
  Company Number: US-AMGEN-COG332982

PATIENT
  Sex: Male

DRUGS (2)
  1. ENBREL [Suspect]
     Indication: PSORIASIS
     Route: 058
  2. HUMIRA [Concomitant]
     Dates: start: 20080401, end: 20081001

REACTIONS (3)
  - ASTHENIA [None]
  - DIZZINESS [None]
  - PSORIASIS [None]
